FAERS Safety Report 5813783-0 (Version None)
Quarter: 2008Q3

REPORT INFORMATION
  Report Type: 
  Country: None (occurrence: None)
  Receive Date: 20080717
  Receipt Date: 20080709
  Transmission Date: 20090109
  Serious: Yes (Other)
  Sender: FDA-Public Use
  Company Number: PHHY2008JP13627

PATIENT

DRUGS (2)
  1. COMTAN [Suspect]
     Indication: DRUG EFFECT DECREASED
     Dosage: UNK
  2. LEVODOPA [Concomitant]

REACTIONS (2)
  - DELUSION [None]
  - HALLUCINATION, VISUAL [None]
